FAERS Safety Report 19982300 (Version 2)
Quarter: 2021Q4

REPORT INFORMATION
  Report Type: Spontaneous
  Country: CO (occurrence: CO)
  Receive Date: 20211022
  Receipt Date: 20211108
  Transmission Date: 20220303
  Serious: Yes (Hospitalization, Other)
  Sender: FDA-Public Use
  Company Number: CO-PFIZER INC-202101366196

PATIENT
  Sex: Female

DRUGS (1)
  1. ENBREL [Suspect]
     Active Substance: ETANERCEPT
     Indication: Psoriasis
     Dosage: UNK
     Route: 065

REACTIONS (6)
  - Skin reaction [Unknown]
  - Toxic skin eruption [Unknown]
  - Drug reaction with eosinophilia and systemic symptoms [Unknown]
  - Pityriasis rubra pilaris [Unknown]
  - Seizure [Unknown]
  - Demyelination [Unknown]
